FAERS Safety Report 9174211 (Version 1)
Quarter: 2013Q1

REPORT INFORMATION
  Report Type: Spontaneous
  Country: US (occurrence: US)
  Receive Date: 20130320
  Receipt Date: 20130320
  Transmission Date: 20140127
  Serious: No
  Sender: FDA-Public Use
  Company Number: US-MYLANLABS-2012S1007356

PATIENT
  Age: 81 Year
  Sex: Female

DRUGS (2)
  1. SOTALOL HYDROCHLORIDE [Suspect]
     Indication: ATRIAL FIBRILLATION
     Route: 048
     Dates: start: 201203
  2. TIROSINT [Concomitant]
     Route: 048
     Dates: start: 2011

REACTIONS (3)
  - Reaction to drug excipients [Not Recovered/Not Resolved]
  - Diarrhoea [Not Recovered/Not Resolved]
  - Sinus headache [Not Recovered/Not Resolved]
